FAERS Safety Report 11862582 (Version 1)
Quarter: 2015Q4

REPORT INFORMATION
  Report Type: Spontaneous
  Country: FR (occurrence: FR)
  Receive Date: 20151223
  Receipt Date: 20151223
  Transmission Date: 20160305
  Serious: Yes (Other)
  Sender: FDA-Public Use
  Company Number: FR-ABBVIE-15K-056-1520920-00

PATIENT
  Age: 39 Year
  Sex: Male

DRUGS (2)
  1. IMUREL [Suspect]
     Active Substance: AZATHIOPRINE SODIUM
     Indication: CROHN^S DISEASE
     Route: 048
     Dates: start: 2010, end: 20150511
  2. HUMIRA [Suspect]
     Active Substance: ADALIMUMAB
     Indication: CROHN^S DISEASE
     Route: 058
     Dates: start: 2010, end: 20150511

REACTIONS (10)
  - CD4/CD8 ratio increased [Unknown]
  - Positron emission tomogram abnormal [Unknown]
  - Pneumonitis [Unknown]
  - Pallor [Unknown]
  - Computerised tomogram thorax abnormal [Unknown]
  - Lymphadenopathy mediastinal [Unknown]
  - Eosinophilia [Recovering/Resolving]
  - Lymphoproliferative disorder [Recovering/Resolving]
  - Blood test abnormal [Unknown]
  - Lymphocytosis [Unknown]

NARRATIVE: CASE EVENT DATE: 20150216
